FAERS Safety Report 24546549 (Version 2)
Quarter: 2024Q4

REPORT INFORMATION
  Report Type: Spontaneous
  Country: FR (occurrence: FR)
  Receive Date: 20241024
  Receipt Date: 20241212
  Transmission Date: 20250115
  Serious: Yes (Hospitalization, Other)
  Sender: MYLAN
  Company Number: None

PATIENT
  Age: 70 Year
  Sex: Female

DRUGS (6)
  1. LACOSAMIDE [Suspect]
     Active Substance: LACOSAMIDE
     Indication: Epilepsy
     Dosage: 200 MILLIGRAM, QD (200 MG PER DAY)
     Route: 048
     Dates: start: 20240807
  2. LANSOPRAZOLE [Suspect]
     Active Substance: LANSOPRAZOLE
     Indication: Gastric ulcer
     Dosage: 15 MILLIGRAM, QD (15 MG PER DAY)
     Route: 048
     Dates: start: 20240101
  3. VALPROATE SODIUM [Suspect]
     Active Substance: VALPROATE SODIUM
     Indication: Epilepsy
     Dosage: 750 MILLIGRAM, BID (750 MG 2 TIMES A DAY)
     Route: 048
     Dates: start: 20240807, end: 20240820
  4. LAMOTRIGINE [Suspect]
     Active Substance: LAMOTRIGINE
     Indication: Epilepsy
     Dosage: 500 MILLIGRAM, QD (500 MG PER DAY)
     Route: 048
     Dates: start: 20240820
  5. KEPPRA [Suspect]
     Active Substance: LEVETIRACETAM
     Indication: Epilepsy
     Dosage: 1500 MILLIGRAM, QD (1500 MG PER DAY)
     Route: 048
     Dates: start: 20240807
  6. LOVENOX [Suspect]
     Active Substance: ENOXAPARIN SODIUM
     Indication: Thrombosis prophylaxis
     Dosage: 4000 INTERNATIONAL UNIT, QD (4000 IU PER DAY)
     Route: 058
     Dates: start: 20240701

REACTIONS (1)
  - Cholestatic liver injury [Not Recovered/Not Resolved]

NARRATIVE: CASE EVENT DATE: 20240808
